FAERS Safety Report 21329620 (Version 1)
Quarter: 2022Q3

REPORT INFORMATION
  Report Type: Spontaneous
  Country: US (occurrence: US)
  Receive Date: 20220913
  Receipt Date: 20220913
  Transmission Date: 20221027
  Serious: Yes (Other)
  Sender: FDA-Public Use
  Company Number: US-ALLERGAN-2229781US

PATIENT
  Sex: Female

DRUGS (1)
  1. QULIPTA [Suspect]
     Active Substance: ATOGEPANT
     Indication: Product used for unknown indication
     Dosage: UNK

REACTIONS (8)
  - Spinal operation [Unknown]
  - Abdominal operation [Unknown]
  - Malaise [Unknown]
  - COVID-19 [Unknown]
  - Anaemia [Unknown]
  - Depression [Unknown]
  - Blood pressure abnormal [Unknown]
  - Headache [Unknown]

NARRATIVE: CASE EVENT DATE: 20220801
